FAERS Safety Report 8522034-8 (Version None)
Quarter: 2012Q3

REPORT INFORMATION
  Report Type: 
  Country: None (occurrence: None)
  Receive Date: 20120719
  Receipt Date: 20120710
  Transmission Date: 20120928
  Serious: Yes (Life-Threatening)
  Sender: FDA-Public Use
  Company Number: JP-JNJFOC-20120706835

PATIENT
  Sex: Female
  Weight: 54 kg

DRUGS (3)
  1. SIMPONI [Suspect]
     Indication: RHEUMATOID ARTHRITIS
     Route: 058
     Dates: start: 20111212
  2. MELOXICAM [Concomitant]
     Indication: RHEUMATOID ARTHRITIS
     Route: 048
  3. BUCILLAMINE [Concomitant]
     Indication: RHEUMATOID ARTHRITIS
     Route: 048

REACTIONS (1)
  - BREAST CANCER [None]
